FAERS Safety Report 21752018 (Version 1)
Quarter: 2022Q4

REPORT INFORMATION
  Report Type: Spontaneous
  Country: US (occurrence: US)
  Receive Date: 20221220
  Receipt Date: 20221220
  Transmission Date: 20230113
  Serious: Yes (Other)
  Sender: FDA-Public Use
  Company Number: US-SUN PHARMACEUTICAL INDUSTRIES LTD-2022R1-369248

PATIENT
  Age: 67 Year
  Sex: Male

DRUGS (2)
  1. QUETIAPINE [Suspect]
     Active Substance: QUETIAPINE
     Indication: Parkinson^s disease
     Dosage: UNK
     Route: 065
  2. PIMAVANSERIN [Suspect]
     Active Substance: PIMAVANSERIN
     Indication: Parkinson^s disease
     Dosage: UNK
     Route: 065

REACTIONS (2)
  - Hallucination, visual [Unknown]
  - Hallucination, tactile [Unknown]
